FAERS Safety Report 6768061-2 (Version None)
Quarter: 2010Q2

REPORT INFORMATION
  Report Type: 
  Country: None (occurrence: None)
  Receive Date: 20100614
  Receipt Date: 20100609
  Transmission Date: 20101027
  Serious: Yes (Life-Threatening)
  Sender: FDA-Public Use
  Company Number: CH-ASTRAZENECA-2010SE26946

PATIENT
  Age: 69 Year
  Sex: Male

DRUGS (2)
  1. ZESTRIL [Suspect]
     Route: 048
  2. AZACTAM [Suspect]
     Route: 041
     Dates: start: 20100426, end: 20100426

REACTIONS (3)
  - ANGIOEDEMA [None]
  - DYSARTHRIA [None]
  - THROAT TIGHTNESS [None]
